FAERS Safety Report 7506824-6 (Version None)
Quarter: 2011Q2

REPORT INFORMATION
  Report Type: 
  Country: None (occurrence: None)
  Receive Date: 20110526
  Receipt Date: 20110518
  Transmission Date: 20111010
  Serious: Yes (Other)
  Sender: FDA-Public Use
  Company Number: A0929153A

PATIENT
  Age: 89 Year
  Sex: Male

DRUGS (3)
  1. IMITREX [Suspect]
     Indication: MIGRAINE PROPHYLAXIS
     Dosage: 100MG VARIABLE DOSE
     Route: 048
  2. CONCURRENT MEDICATIONS [Concomitant]
  3. AMERGE [Suspect]
     Indication: MIGRAINE PROPHYLAXIS
     Dosage: 25MG VARIABLE DOSE
     Route: 048

REACTIONS (2)
  - THROMBOCYTOPENIA [None]
  - NON-HODGKIN'S LYMPHOMA [None]
